FAERS Safety Report 25369356 (Version 1)
Quarter: 2025Q2

REPORT INFORMATION
  Report Type: Spontaneous
  Country: US (occurrence: None)
  Receive Date: 20250527
  Receipt Date: 20250527
  Transmission Date: 20250717
  Serious: Yes (Disabling)
  Sender: FDA-CTU
  Company Number: None

PATIENT
  Age: 60 Year
  Sex: Female
  Weight: 62.1 kg

DRUGS (10)
  1. LEVETIRACETAM [Suspect]
     Active Substance: LEVETIRACETAM
     Indication: Epilepsy
     Dosage: FREQUENCY : DAILY;?
     Route: 048
     Dates: start: 20050401, end: 20241017
  2. LEXAPRO [Concomitant]
     Active Substance: ESCITALOPRAM OXALATE
  3. FOSAMAX [Concomitant]
     Active Substance: ALENDRONATE SODIUM
  4. CALCIUM [Concomitant]
     Active Substance: CALCIUM
  5. VITAMIN D3 [Concomitant]
     Active Substance: CHOLECALCIFEROL
  6. MAGNESIUM [Concomitant]
     Active Substance: MAGNESIUM
  7. VITAMIN C [Concomitant]
     Active Substance: ASCORBIC ACID
  8. VITAMINS [Concomitant]
     Active Substance: VITAMINS
  9. MENAQUINONE 6 [Concomitant]
     Active Substance: MENAQUINONE 6
  10. PROTEIN SHAKE [Concomitant]

REACTIONS (2)
  - Compression fracture [None]
  - Osteoporosis [None]

NARRATIVE: CASE EVENT DATE: 20240912
